FAERS Safety Report 21580767 (Version 1)
Quarter: 2022Q4

REPORT INFORMATION
  Report Type: Spontaneous
  Country: US (occurrence: US)
  Receive Date: 20221111
  Receipt Date: 20221111
  Transmission Date: 20230113
  Serious: No
  Sender: FDA-Public Use
  Company Number: US-APOTEX-2022AP007312

PATIENT
  Sex: Female

DRUGS (1)
  1. FENTANYL TRANSDERMAL SYSTEM [Suspect]
     Active Substance: FENTANYL
     Indication: Pain
     Dosage: 1 PATCH EVERY 2-3 DAYS
     Route: 062

REACTIONS (6)
  - Product adhesion issue [Unknown]
  - Product use issue [Unknown]
  - Product substitution issue [Unknown]
  - Unevaluable event [Unknown]
  - Withdrawal syndrome [Recovered/Resolved]
  - Drug effect less than expected [Unknown]

NARRATIVE: CASE EVENT DATE: 20220101
